FAERS Safety Report 4450500-3 (Version None)
Quarter: 2004Q3

REPORT INFORMATION
  Report Type: 
  Country: None (occurrence: None)
  Receive Date: 20040804
  Receipt Date: 20040513
  Transmission Date: 20050211
  Serious: Yes (Hospitalization)
  Sender: FDA-Public Use
  Company Number: 206579

PATIENT
  Age: 72 Year
  Sex: Female
  Weight: 62.6 kg

DRUGS (6)
  1. HERCEPTIN [Suspect]
     Indication: BREAST CANCER
     Dosage: 8 MG/KG, SINGLE, INTRAVENOUS
     Route: 042
     Dates: start: 20040505, end: 20040505
  2. HERCEPTIN [Suspect]
     Indication: INTRAVENOUS CATHETER MANAGEMENT
     Dosage: 8 MG/KG, SINGLE, INTRAVENOUS
     Route: 042
     Dates: start: 20040505, end: 20040505
  3. WARFARIN SODIUM [Suspect]
     Dosage: 2 MG, QD, ORAL
     Route: 048
  4. ZOFRAN [Concomitant]
  5. BEXTRA [Concomitant]
  6. NEURONTIN [Concomitant]

REACTIONS (1)
  - HAEMORRHAGE [None]
